FAERS Safety Report 5196299-7 (Version None)
Quarter: 2006Q4

REPORT INFORMATION
  Report Type: 
  Country: None (occurrence: None)
  Receive Date: 20061222
  Receipt Date: 20061211
  Transmission Date: 20070319
  Serious: Yes (Other)
  Sender: FDA-Public Use
  Company Number: 2006151958

PATIENT
  Age: 32 Year
  Sex: Female

DRUGS (3)
  1. ZOLOFT [Suspect]
     Dosage: 100 MG (50 MG, 2 IN 1 D), ORAL
     Route: 048
  2. ZYPREXA [Concomitant]
  3. LAMICTAL [Concomitant]

REACTIONS (8)
  - BACK INJURY [None]
  - CARDIAC DISORDER [None]
  - DEJA VU [None]
  - GRAND MAL CONVULSION [None]
  - HEAD INJURY [None]
  - HYPNAGOGIC HALLUCINATION [None]
  - NIGHT SWEATS [None]
  - SLEEP DISORDER [None]
